FAERS Safety Report 14404163 (Version 2)
Quarter: 2018Q1

REPORT INFORMATION
  Report Type: Report from Study
  Country: JP (occurrence: JP)
  Receive Date: 20180117
  Receipt Date: 20180325
  Transmission Date: 20180509
  Serious: Yes (Disabling)
  Sender: FDA-Public Use
  Company Number: JP-SHIRE-JP201736924

PATIENT

DRUGS (20)
  1. PHOSBLOCK [Concomitant]
     Active Substance: FERRIC HYDROXIDE
     Indication: HYPERPHOSPHATAEMIA
  2. SLOW-FE [Concomitant]
     Active Substance: FERROUS SULFATE
     Indication: PRODUCT USED FOR UNKNOWN INDICATION
  3. 405 (LANTHANUM CARBONATE) [Suspect]
     Active Substance: LANTHANUM CARBONATE
     Dosage: 1500 MG, 1X/DAY:QD
     Route: 048
     Dates: start: 20091202, end: 20120501
  4. 405 (LANTHANUM CARBONATE) [Suspect]
     Active Substance: LANTHANUM CARBONATE
     Dosage: 750 MG, 1X/DAY:QD
     Route: 048
     Dates: start: 20130918, end: 20140527
  5. NEUROTROPIN                        /00398601/ [Concomitant]
     Active Substance: CYANOCOBALAMIN\LIDOCAINE HYDROCHLORIDE\PYRIDOXINE HYDROCHLORIDE\THIAMINE HYDROCHLORIDE
     Indication: PRODUCT USED FOR UNKNOWN INDICATION
  6. ALFAROL [Concomitant]
     Active Substance: ALFACALCIDOL
     Indication: HYPERPHOSPHATAEMIA
  7. METHYCOOL SAWAI [Concomitant]
     Indication: PRODUCT USED FOR UNKNOWN INDICATION
  8. 405 (LANTHANUM CARBONATE) [Suspect]
     Active Substance: LANTHANUM CARBONATE
     Dosage: 2000 MG, 1X/DAY:QD
     Route: 048
     Dates: start: 20150708, end: 20151102
  9. 405 (LANTHANUM CARBONATE) [Suspect]
     Active Substance: LANTHANUM CARBONATE
     Indication: HYPERPHOSPHATAEMIA
     Dosage: 750 MG, 1X/DAY:QD
     Route: 048
     Dates: start: 20091009, end: 20091201
  10. 405 (LANTHANUM CARBONATE) [Suspect]
     Active Substance: LANTHANUM CARBONATE
     Dosage: 1000 MG, 1X/DAY:QD
     Route: 048
     Dates: start: 20130206, end: 20130917
  11. 405 (LANTHANUM CARBONATE) [Suspect]
     Active Substance: LANTHANUM CARBONATE
     Indication: HYPERPHOSPHATAEMIA
     Dosage: 1125 MG, 1X/DAY:QD
     Route: 048
     Dates: start: 20140528, end: 20150707
  12. 405 (LANTHANUM CARBONATE) [Suspect]
     Active Substance: LANTHANUM CARBONATE
     Dosage: 1500 MG, 1X/DAY:QD
     Route: 048
     Dates: start: 20160217, end: 20160510
  13. 405 (LANTHANUM CARBONATE) [Suspect]
     Active Substance: LANTHANUM CARBONATE
     Dosage: 2250 MG, 1X/DAY:QD
     Route: 048
     Dates: start: 20161221, end: 20171025
  14. VENOFER [Concomitant]
     Active Substance: IRON SUCROSE
     Indication: PRODUCT USED FOR UNKNOWN INDICATION
  15. 405 (LANTHANUM CARBONATE) [Suspect]
     Active Substance: LANTHANUM CARBONATE
     Dosage: 750 MG, 1X/DAY:QD
     Route: 048
     Dates: start: 20151103, end: 20160216
  16. DALFAROL [Concomitant]
     Indication: PRODUCT USED FOR UNKNOWN INDICATION
  17. ALLEGRA [Concomitant]
     Active Substance: FEXOFENADINE HYDROCHLORIDE
     Indication: PRODUCT USED FOR UNKNOWN INDICATION
  18. SEVELAMER HYDROCHLORIDE [Concomitant]
     Active Substance: SEVELAMER HYDROCHLORIDE
     Indication: HYPERPHOSPHATAEMIA
  19. 405 (LANTHANUM CARBONATE) [Suspect]
     Active Substance: LANTHANUM CARBONATE
     Dosage: 1250 MG, 1X/DAY:QD
     Route: 048
     Dates: start: 20120502, end: 20130205
  20. 405 (LANTHANUM CARBONATE) [Suspect]
     Active Substance: LANTHANUM CARBONATE
     Dosage: 2250 MG, 1X/DAY:QD
     Route: 048
     Dates: start: 20160511, end: 20161220

REACTIONS (6)
  - Nausea [Recovering/Resolving]
  - Hypertension [Recovering/Resolving]
  - Vascular injury [Recovering/Resolving]
  - Arthralgia [Recovered/Resolved]
  - Blood parathyroid hormone increased [Recovered/Resolved]
  - Hyperparathyroidism secondary [Recovered/Resolved]

NARRATIVE: CASE EVENT DATE: 20111206
